FAERS Safety Report 25843608 (Version 2)
Quarter: 2025Q4

REPORT INFORMATION
  Report Type: Spontaneous
  Country: US (occurrence: US)
  Receive Date: 20250924
  Receipt Date: 20251016
  Transmission Date: 20260117
  Serious: Yes (Other)
  Sender: INSUD PHARMA
  Company Number: US-INSUD PHARMA-2509US07467

PATIENT

DRUGS (2)
  1. TESTOSTERONE CYPIONATE [Suspect]
     Active Substance: TESTOSTERONE CYPIONATE
     Indication: Blood testosterone decreased
     Dosage: 2 ML EVERY 14 DAYS
     Route: 030
     Dates: start: 202508
  2. TESTOSTERONE CYPIONATE [Suspect]
     Active Substance: TESTOSTERONE CYPIONATE
     Indication: Hypogonadism
     Dosage: UNK
     Route: 030

REACTIONS (27)
  - Erectile dysfunction [Unknown]
  - Hot flush [Unknown]
  - Body fat disorder [Unknown]
  - Abdominal distension [Unknown]
  - Urine odour abnormal [Unknown]
  - Chromaturia [Unknown]
  - Renal pain [Unknown]
  - Hepatic pain [Unknown]
  - Abdominal pain [Unknown]
  - Fatigue [Unknown]
  - Lethargy [Unknown]
  - Head discomfort [Unknown]
  - Dehydration [Unknown]
  - Blood sodium decreased [Unknown]
  - Dysuria [Unknown]
  - Cardiovascular disorder [Unknown]
  - Flushing [Not Recovered/Not Resolved]
  - Nausea [Not Recovered/Not Resolved]
  - Vomiting [Not Recovered/Not Resolved]
  - Constipation [Not Recovered/Not Resolved]
  - Pallor [Not Recovered/Not Resolved]
  - Alopecia [Not Recovered/Not Resolved]
  - Dizziness [Unknown]
  - Dyspnoea [Unknown]
  - Product quality issue [Unknown]
  - Drug delivery system issue [Unknown]
  - Liquid product physical issue [Unknown]

NARRATIVE: CASE EVENT DATE: 20250101
